FAERS Safety Report 8483341-0 (Version None)
Quarter: 2012Q3

REPORT INFORMATION
  Report Type: 
  Country: None (occurrence: None)
  Receive Date: 20120702
  Receipt Date: 20120627
  Transmission Date: 20120928
  Serious: No
  Sender: FDA-Public Use
  Company Number: US-PFIZER INC-2012155825

PATIENT
  Age: 57 Year
  Sex: Female
  Weight: 56.689 kg

DRUGS (3)
  1. CHANTIX [Suspect]
     Dosage: 0.5 MG, 2X/DAY
     Route: 048
     Dates: start: 20120301, end: 20120301
  2. CHANTIX [Suspect]
     Indication: SMOKING CESSATION THERAPY
     Dosage: 0.5 MG, DAILY
     Route: 048
     Dates: start: 20120320, end: 20120301
  3. CHANTIX [Suspect]
     Dosage: 1 MG, 2X/DAY
     Route: 048
     Dates: start: 20120327, end: 20120301

REACTIONS (6)
  - DRUG INTOLERANCE [None]
  - THINKING ABNORMAL [None]
  - NERVOUSNESS [None]
  - FEELING ABNORMAL [None]
  - CONFUSIONAL STATE [None]
  - IMPAIRED DRIVING ABILITY [None]
